FAERS Safety Report 12801515 (Version 1)
Quarter: 2016Q4

REPORT INFORMATION
  Report Type: Spontaneous
  Country: US (occurrence: US)
  Receive Date: 20161003
  Receipt Date: 20161003
  Transmission Date: 20170207
  Serious: Yes (Death)
  Sender: FDA-Public Use
  Company Number: US-AUROBINDO-AUR-APL-2016-12049

PATIENT
  Age: 21 Month
  Sex: Female

DRUGS (4)
  1. MITOXANTRONE [Suspect]
     Active Substance: MITOXANTRONE HYDROCHLORIDE
     Indication: ACUTE LYMPHOCYTIC LEUKAEMIA
     Dosage: 10 MG/M2, ONCE A DAY
     Route: 042
  2. VINORELBINE [Suspect]
     Active Substance: VINORELBINE\VINORELBINE TARTRATE
     Indication: ACUTE LYMPHOCYTIC LEUKAEMIA
     Dosage: 25 MG/M2, ONCE A DAY
     Route: 042
  3. BORTEZOMIB [Suspect]
     Active Substance: BORTEZOMIB
     Indication: ACUTE LYMPHOCYTIC LEUKAEMIA
     Dosage: 1.3 MG/M2,
     Route: 042
  4. DEXAMETHASONE. [Suspect]
     Active Substance: DEXAMETHASONE
     Indication: ACUTE LYMPHOCYTIC LEUKAEMIA
     Dosage: 10 MG/M2/D
     Route: 065

REACTIONS (1)
  - Sepsis [Fatal]
